FAERS Safety Report 9871526 (Version 1)
Quarter: 2014Q1

REPORT INFORMATION
  Report Type: Report from Study
  Country: US (occurrence: US)
  Receive Date: 20140205
  Receipt Date: 20140205
  Transmission Date: 20141002
  Serious: No
  Sender: FDA-Public Use
  Company Number: US-ALEXION-A201400220

PATIENT
  Age: 2 Year
  Sex: Female

DRUGS (9)
  1. SOLIRIS [Suspect]
     Indication: HAEMOLYTIC URAEMIC SYNDROME
     Dosage: 300 MG, Q2W
     Route: 042
     Dates: start: 20120817
  2. SOLIRIS [Suspect]
     Dosage: UNK
     Route: 042
     Dates: start: 20131212
  3. ACETAMINOPHEN [Concomitant]
     Indication: PAIN
     Dosage: 0.8 ML, Q4HRS PRN
     Dates: start: 20121005
  4. COLACE [Concomitant]
     Dosage: 60 MG/15 ML, QD
     Route: 048
     Dates: start: 20121005
  5. LANSOPRAZOLE [Concomitant]
     Dosage: 2.5 ML, BID
     Route: 048
     Dates: start: 20121005
  6. LISINOPRIL [Concomitant]
     Indication: HYPERTENSION
     Dosage: 1 ML, BID
     Route: 048
     Dates: start: 20121109
  7. VALPROIC ACID [Concomitant]
     Dosage: 1.8 ML, TID
     Route: 048
     Dates: start: 20130128
  8. CLONAZEPAM [Concomitant]
     Dosage: 1 UNK, UNK
     Route: 048
     Dates: start: 20130313
  9. NYSTATIN [Concomitant]
     Indication: PROPHYLAXIS
     Dosage: 0.5 ML, BID,PRN
     Dates: start: 20121005

REACTIONS (1)
  - Blood count abnormal [Not Recovered/Not Resolved]
